FAERS Safety Report 21363394 (Version 1)
Quarter: 2022Q3

REPORT INFORMATION
  Report Type: Other
  Country: CA (occurrence: None)
  Receive Date: 20220922
  Receipt Date: 20220922
  Transmission Date: 20221027
  Serious: Yes (Other)
  Sender: FDA-Public Use
  Company Number: CA-ROCHE-1749636

PATIENT
  Age: 26 Year
  Sex: Male
  Weight: 158.8 kg

DRUGS (17)
  1. RITUXAN [Suspect]
     Active Substance: RITUXIMAB
     Indication: Vasculitis
     Route: 042
     Dates: start: 20160413, end: 20160427
  2. RITUXAN [Suspect]
     Active Substance: RITUXIMAB
     Indication: Granulomatosis with polyangiitis
     Dosage: 1 DOSE
     Route: 042
     Dates: start: 20170810, end: 20170810
  3. RITUXAN [Suspect]
     Active Substance: RITUXIMAB
     Route: 042
     Dates: start: 20180207, end: 20180813
  4. RITUXAN [Suspect]
     Active Substance: RITUXIMAB
     Route: 042
     Dates: start: 20170116, end: 20170130
  5. RITUXAN [Suspect]
     Active Substance: RITUXIMAB
     Dosage: DAY 1, 15
     Route: 042
     Dates: start: 20191024, end: 20200526
  6. RITUXAN [Suspect]
     Active Substance: RITUXIMAB
     Route: 042
     Dates: start: 20201111, end: 20210804
  7. RITUXAN [Suspect]
     Active Substance: RITUXIMAB
     Route: 042
     Dates: start: 20220224
  8. RITUXAN [Suspect]
     Active Substance: RITUXIMAB
     Route: 042
     Dates: start: 20220224
  9. IMURAN [Suspect]
     Active Substance: AZATHIOPRINE
     Indication: Product used for unknown indication
     Route: 065
  10. METHOTREXATE [Suspect]
     Active Substance: METHOTREXATE
     Indication: Product used for unknown indication
     Route: 065
     Dates: start: 2019
  11. ACETAMINOPHEN [Concomitant]
     Active Substance: ACETAMINOPHEN
     Indication: Premedication
     Route: 048
     Dates: start: 20160413
  12. DIPHENHYDRAMINE [Concomitant]
     Active Substance: DIPHENHYDRAMINE
     Indication: Premedication
     Route: 048
     Dates: start: 20160413
  13. METHYLPREDNISOLONE [Concomitant]
     Active Substance: METHYLPREDNISOLONE
     Indication: Premedication
     Route: 042
     Dates: start: 20160413
  14. PREDNISONE [Concomitant]
     Active Substance: PREDNISONE
     Indication: Oropharyngeal pain
     Dosage: 25MG FOR 7 DAYS, THEN DECREASING THE DOSAGE EVERY?7 DAYS UNTIL I FINISH
     Route: 065
  15. EFFEXOR [Concomitant]
     Active Substance: VENLAFAXINE HYDROCHLORIDE
     Indication: Depression
  16. BENADRYL [Concomitant]
     Active Substance: DIPHENHYDRAMINE HYDROCHLORIDE
     Route: 048
     Dates: start: 20160413
  17. INDOMETHACIN [Concomitant]
     Active Substance: INDOMETHACIN
     Indication: Gout
     Dates: start: 202107

REACTIONS (24)
  - Lung disorder [Recovered/Resolved]
  - Bronchiectasis [Unknown]
  - Nodule [Unknown]
  - Pulmonary cavitation [Unknown]
  - Skin ulcer [Recovered/Resolved]
  - Investigation abnormal [Unknown]
  - Granulomatosis with polyangiitis [Unknown]
  - Heart rate increased [Unknown]
  - Blood pressure increased [Unknown]
  - Productive cough [Unknown]
  - Weight increased [Unknown]
  - Vasculitis [Recovering/Resolving]
  - Oxygen saturation decreased [Unknown]
  - Weight decreased [Recovering/Resolving]
  - Sinus pain [Unknown]
  - Ear disorder [Unknown]
  - Alanine aminotransferase increased [Unknown]
  - Cough [Unknown]
  - Off label use [Unknown]
  - C-reactive protein increased [Unknown]
  - Blood pressure diastolic abnormal [Unknown]
  - Oropharyngeal pain [Unknown]
  - Blood pressure systolic increased [Unknown]
  - Heart rate increased [Unknown]

NARRATIVE: CASE EVENT DATE: 20160427
